FAERS Safety Report 15581344 (Version 1)
Quarter: 2018Q4

REPORT INFORMATION
  Report Type: Spontaneous
  Country: US (occurrence: US)
  Receive Date: 20181102
  Receipt Date: 20181102
  Transmission Date: 20190205
  Serious: No
  Sender: FDA-Public Use
  Company Number: US-RADIUS HEALTH INC.-2018US001750

PATIENT
  Sex: Female
  Weight: 62.59 kg

DRUGS (5)
  1. VITAMIN D3 [Concomitant]
     Active Substance: CHOLECALCIFEROL
     Indication: PRODUCT USED FOR UNKNOWN INDICATION
  2. TYMLOS [Suspect]
     Active Substance: ABALOPARATIDE
     Indication: OSTEOPOROSIS POSTMENOPAUSAL
     Dosage: 80 MCG, QD
     Route: 058
     Dates: start: 20180806
  3. MULTIVITAMINS [Concomitant]
     Active Substance: VITAMINS
     Indication: PRODUCT USED FOR UNKNOWN INDICATION
  4. CALCIUM CARBONATE. [Concomitant]
     Active Substance: CALCIUM CARBONATE
     Indication: PRODUCT USED FOR UNKNOWN INDICATION
  5. TYLENOL [Concomitant]
     Active Substance: ACETAMINOPHEN
     Indication: PAIN

REACTIONS (13)
  - Palpitations [Unknown]
  - Fracture pain [Unknown]
  - Flushing [Unknown]
  - Dizziness [Unknown]
  - Bone pain [Unknown]
  - Heart rate irregular [Unknown]
  - Headache [Unknown]
  - Hypotension [Unknown]
  - Head discomfort [Unknown]
  - Erythema [Unknown]
  - Feeling hot [Unknown]
  - Feeling abnormal [Unknown]
  - Micturition urgency [Unknown]
